FAERS Safety Report 5898618-2 (Version None)
Quarter: 2008Q3

REPORT INFORMATION
  Report Type: 
  Country: None (occurrence: None)
  Receive Date: 20080925
  Receipt Date: 20080311
  Transmission Date: 20090109
  Serious: No
  Sender: FDA-Public Use
  Company Number: A0712475A

PATIENT
  Age: 57 Year
  Sex: Female
  Weight: 90.9 kg

DRUGS (11)
  1. WELLBUTRIN XL [Suspect]
     Dosage: 300MG PER DAY
     Route: 048
     Dates: start: 20080131
  2. SEROQUEL [Concomitant]
  3. PREMARIN [Concomitant]
  4. RITALIN [Concomitant]
  5. LORAZEPAM [Concomitant]
  6. HYDROCODONE BITARTRATE [Concomitant]
  7. ZETIA [Concomitant]
  8. PROTONIX [Concomitant]
  9. PROPRANOLOL [Concomitant]
  10. GEMFIBROZIL [Concomitant]
  11. LOTREL [Concomitant]

REACTIONS (3)
  - ALOPECIA [None]
  - PAIN OF SKIN [None]
  - PRURITUS [None]
